FAERS Safety Report 14365007 (Version 1)
Quarter: 2018Q1

REPORT INFORMATION
  Report Type: Spontaneous
  Country: US (occurrence: US)
  Receive Date: 20180108
  Receipt Date: 20180108
  Transmission Date: 20180509
  Serious: No
  Sender: FDA-Public Use
  Company Number: US-ROCHE-1922715

PATIENT

DRUGS (1)
  1. ALTEPLASE. [Suspect]
     Active Substance: ALTEPLASE
     Indication: PRODUCT USED FOR UNKNOWN INDICATION
     Dosage: INFUSING AT A RATE OF 1MG/HR UNTIL THE NEXT DAY.
     Route: 065

REACTIONS (3)
  - Off label use [Unknown]
  - Intercepted medication error [Unknown]
  - Product storage error [Unknown]
